FAERS Safety Report 8516620-9 (Version None)
Quarter: 2012Q3

REPORT INFORMATION
  Report Type: 
  Country: None (occurrence: None)
  Receive Date: 20120718
  Receipt Date: 20120706
  Transmission Date: 20120928
  Serious: Yes (Other)
  Sender: FDA-Public Use
  Company Number: US-JNJFOC-20090506992

PATIENT
  Sex: Female
  Weight: 58.06 kg

DRUGS (7)
  1. KLONOPIN [Concomitant]
     Indication: MUSCLE SPASMS
     Route: 048
     Dates: start: 20070101
  2. PAXIL [Concomitant]
     Indication: NEURALGIA
     Route: 048
     Dates: start: 20060101
  3. DURAGESIC-100 [Suspect]
     Indication: MULTIPLE SCLEROSIS
     Route: 062
  4. DURAGESIC-100 [Suspect]
     Indication: PRODUCT USED FOR UNKNOWN INDICATION
     Route: 062
  5. FENTANYL-100 [Suspect]
     Route: 062
     Dates: start: 20090301
  6. FENTANYL-100 [Suspect]
     Indication: NERVE INJURY
     Route: 062
     Dates: start: 20080101, end: 20090301
  7. DURAGESIC-100 [Suspect]
     Indication: NEUROPATHY PERIPHERAL
     Route: 062

REACTIONS (12)
  - RED BLOOD CELL ABNORMALITY [None]
  - ABNORMAL LOSS OF WEIGHT [None]
  - WHITE BLOOD CELL COUNT ABNORMAL [None]
  - SPINAL CORD NEOPLASM [None]
  - VITAMIN D DEFICIENCY [None]
  - INAPPROPRIATE SCHEDULE OF DRUG ADMINISTRATION [None]
  - PRODUCT QUALITY ISSUE [None]
  - PAIN [None]
  - INADEQUATE ANALGESIA [None]
  - HYPERHIDROSIS [None]
  - DRUG EFFECT INCREASED [None]
  - WRONG TECHNIQUE IN DRUG USAGE PROCESS [None]
